FAERS Safety Report 4525161-5 (Version None)
Quarter: 2004Q4

REPORT INFORMATION
  Report Type: 
  Country: None (occurrence: None)
  Receive Date: 20041117
  Receipt Date: 20040209
  Transmission Date: 20050328
  Serious: Yes (Other)
  Sender: FDA-Public Use
  Company Number: 2004S1000405

PATIENT
  Sex: Male

DRUGS (5)
  1. CLOZAPINE [Suspect]
     Indication: SCHIZOPHRENIA
     Dosage: 100MG BID, ORAL
     Route: 048
     Dates: start: 20040129
  2. ARIPIPRAZOLE [Concomitant]
  3. OXCARBAZEPINE [Concomitant]
  4. LEVOTHYROXINE SODIUM [Concomitant]
  5. QUETIAPINE FUMARATE [Concomitant]

REACTIONS (2)
  - NEUTROPENIA [None]
  - WHITE BLOOD CELL COUNT DECREASED [None]
